FAERS Safety Report 6512125-5 (Version None)
Quarter: 2009Q4

REPORT INFORMATION
  Report Type: 
  Country: None (occurrence: None)
  Receive Date: 20091222
  Receipt Date: 20090605
  Transmission Date: 20100525
  Serious: No
  Sender: FDA-Public Use
  Company Number: US-ASTRAZENECA-2009UW14470

PATIENT
  Sex: Female
  Weight: 60.8 kg

DRUGS (9)
  1. CRESTOR [Suspect]
     Route: 048
  2. NIACIN [Concomitant]
  3. TOPROL-XL [Concomitant]
     Route: 048
  4. ALTACE [Concomitant]
  5. ASPIRIN [Concomitant]
  6. LAVASA [Concomitant]
  7. WELLCALL [Concomitant]
  8. WARFARIN SODIUM [Concomitant]
  9. BENADRYL [Concomitant]

REACTIONS (1)
  - DYSPHONIA [None]
